FAERS Safety Report 8104010-2 (Version None)
Quarter: 2012Q1

REPORT INFORMATION
  Report Type: 
  Country: None (occurrence: None)
  Receive Date: 20120201
  Receipt Date: 20120123
  Transmission Date: 20120608
  Serious: Yes (Hospitalization)
  Sender: FDA-Public Use
  Company Number: US-BAYER-2011-046572

PATIENT
  Age: 40 Year
  Sex: Female
  Weight: 100 kg

DRUGS (17)
  1. YAZ [Suspect]
  2. INSULIN [Concomitant]
     Dosage: UNK
     Dates: start: 19990101
  3. NOVOLOG [Concomitant]
  4. BAYER ASPIRIN EC LOW DOSE [Concomitant]
  5. METOPROLOL TARTRATE [Concomitant]
     Dosage: UNK
     Dates: start: 20100601
  6. YAZ [Suspect]
     Indication: PREMENSTRUAL SYNDROME
  7. VALTREX [Concomitant]
  8. YAZ [Suspect]
     Indication: ACNE
     Dosage: UNK
     Dates: start: 20090201, end: 20100301
  9. JANUMET [Concomitant]
     Dosage: UNK
     Dates: start: 20100601
  10. HYDROCHLOROTHIAZIDE [Concomitant]
     Dosage: UNK
     Dates: start: 20090701
  11. GLIPIZIDE [Concomitant]
     Dosage: UNK
     Dates: start: 20090101
  12. GLIMEPIRIDE [Concomitant]
  13. ATENOLOL [Concomitant]
  14. DILTIAZEM HCL [Concomitant]
     Dosage: UNK
     Dates: start: 20090101
  15. SERTRALINE HYDROCHLORIDE [Concomitant]
     Dosage: UNK
     Dates: start: 20100701
  16. SIMVASTATIN [Concomitant]
  17. MULTI-DAY (ORAL) ACTIVE [Concomitant]

REACTIONS (6)
  - CHOLECYSTITIS CHRONIC [None]
  - INJURY [None]
  - PAIN [None]
  - EMOTIONAL DISTRESS [None]
  - MENTAL DISORDER [None]
  - ANXIETY [None]
